FAERS Safety Report 24225117 (Version 1)
Quarter: 2024Q3

REPORT INFORMATION
  Report Type: Spontaneous
  Country: US (occurrence: US)
  Receive Date: 20240820
  Receipt Date: 20240820
  Transmission Date: 20241017
  Serious: Yes (Other)
  Sender: NOVO NORDISK
  Company Number: US-NOVOPROD-1269276

PATIENT
  Age: 58 Year
  Sex: Male

DRUGS (1)
  1. NOVOLIN 70/30 [Suspect]
     Active Substance: INSULIN HUMAN
     Indication: Diabetes mellitus
     Dosage: 24 IU, QD
     Route: 058

REACTIONS (3)
  - Cardiac operation [Unknown]
  - Myocardial infarction [Unknown]
  - Renal disorder [Unknown]

NARRATIVE: CASE EVENT DATE: 20100101
